FAERS Safety Report 9403025 (Version 2)
Quarter: 2014Q1

REPORT INFORMATION
  Report Type: Report from Study
  Country: US (occurrence: US)
  Receive Date: 20130716
  Receipt Date: 20140224
  Transmission Date: 20141002
  Serious: Yes (Hospitalization)
  Sender: FDA-Public Use
  Company Number: US-BRISTOL-MYERS SQUIBB COMPANY-19081017

PATIENT
  Age: 57 Year
  Sex: Male

DRUGS (11)
  1. NIVOLUMAB [Suspect]
     Indication: MALIGNANT MELANOMA
     Dosage: TOTAL DAILY DOSE:91MG;NO OF COURSES:2.
     Route: 042
     Dates: start: 20130524
  2. IPILIMUMAB [Suspect]
     Indication: MALIGNANT MELANOMA
     Dosage: TOTAL DAILY DOSE:273MG;NO OF COURSES:2.
     Route: 042
     Dates: start: 20130524
  3. VITAMIN C [Concomitant]
     Indication: VITAMIN SUPPLEMENTATION
     Route: 048
     Dates: start: 2003
  4. VITAMIN D [Concomitant]
     Indication: VITAMIN SUPPLEMENTATION
     Route: 048
     Dates: start: 2003
  5. MULTIVITAMIN [Concomitant]
     Indication: VITAMIN SUPPLEMENTATION
     Dosage: 1DF:1CAPSULE.
     Route: 048
     Dates: start: 2003
  6. EFFEXOR XR [Concomitant]
     Indication: DEPRESSION
     Route: 048
     Dates: start: 1998
  7. ACETAMINOPHEN [Concomitant]
     Indication: HEADACHE
     Route: 048
     Dates: start: 201306
  8. OXYCODONE [Concomitant]
     Indication: HEADACHE
     Route: 048
     Dates: start: 20130701
  9. BACTRIM [Concomitant]
     Indication: SINUS CONGESTION
     Dosage: 1DF:800-160MG
     Route: 048
     Dates: start: 20130701, end: 20130703
  10. ZOFRAN [Concomitant]
     Indication: VOMITING
     Route: 048
     Dates: start: 20130701
  11. ZOFRAN [Concomitant]
     Indication: NAUSEA
     Route: 048
     Dates: start: 20130701

REACTIONS (3)
  - Diarrhoea [Recovered/Resolved]
  - Nausea [Recovered/Resolved]
  - Vomiting [Recovered/Resolved]
